FAERS Safety Report 7078772-X (Version None)
Quarter: 2010Q4

REPORT INFORMATION
  Report Type: 
  Country: None (occurrence: None)
  Receive Date: 20101102
  Receipt Date: 20101026
  Transmission Date: 20110411
  Serious: Yes (Other)
  Sender: FDA-Public Use
  Company Number: KR-PFIZER INC-2010135603

PATIENT
  Age: 79 Year
  Sex: Female

DRUGS (1)
  1. DITRUSITOL [Suspect]
     Indication: URINARY INCONTINENCE
     Dosage: 2 MG, 2X/DAY
     Route: 048

REACTIONS (2)
  - GLAUCOMA [None]
  - MEDICATION ERROR [None]
